FAERS Safety Report 9554121 (Version 2)
Quarter: 2013Q3

REPORT INFORMATION
  Report Type: Report from Study
  Country: DE (occurrence: DE)
  Receive Date: 20130925
  Receipt Date: 20130925
  Transmission Date: 20140515
  Serious: Yes (Hospitalization, Other)
  Sender: FDA-Public Use
  Company Number: DE-ROCHE-592289

PATIENT
  Age: 68 Year
  Sex: Female

DRUGS (1)
  1. INTERFERON ALFA-2A [Suspect]
     Indication: MALIGNANT MELANOMA
     Route: 058
     Dates: start: 20061104, end: 20070530

REACTIONS (3)
  - Somnolence [Recovered/Resolved]
  - Abdominal pain [Recovered/Resolved]
  - General physical health deterioration [Recovered/Resolved]
